FAERS Safety Report 21144439 (Version 1)
Quarter: 2022Q3

REPORT INFORMATION
  Report Type: Spontaneous
  Country: US (occurrence: US)
  Receive Date: 20220728
  Receipt Date: 20220728
  Transmission Date: 20221027
  Serious: No
  Sender: FDA-Public Use
  Company Number: US-PFIZER INC-202201009725

PATIENT
  Age: 25 Year
  Sex: Male
  Weight: 67.59 kg

DRUGS (1)
  1. VIAGRA [Suspect]
     Active Substance: SILDENAFIL CITRATE
     Indication: Erectile dysfunction
     Dosage: 100 MG (100 MG A TIME)

REACTIONS (3)
  - Feeling abnormal [Unknown]
  - Dysuria [Unknown]
  - Erection increased [Unknown]
